FAERS Safety Report 19137440 (Version 2)
Quarter: 2021Q2

REPORT INFORMATION
  Report Type: Spontaneous
  Country: IT (occurrence: IT)
  Receive Date: 20210414
  Receipt Date: 20210428
  Transmission Date: 20210717
  Serious: Yes (Death)
  Sender: FDA-Public Use
  Company Number: IT-TEVA-2021-IT-1895271

PATIENT
  Age: 60 Year
  Sex: Male

DRUGS (12)
  1. MYCOPHENOLATE SODIUM [Suspect]
     Active Substance: MYCOPHENOLATE SODIUM
     Indication: VASCULITIS
     Dosage: 2000 MG
     Route: 048
     Dates: start: 20210119, end: 20210304
  2. DELTACORTENE 25 MG COMPRESSE [Suspect]
     Active Substance: PREDNISONE
     Indication: IDIOPATHIC PULMONARY FIBROSIS
     Dosage: 31.25 MG
  3. AUGMENTIN [Concomitant]
     Active Substance: AMOXICILLIN\CLAVULANATE POTASSIUM
  4. FOSAMAX [Concomitant]
     Active Substance: ALENDRONATE SODIUM
  5. MYCOSTATIN [Concomitant]
     Active Substance: NYSTATIN
  6. CALCIUM CARBONATE. [Concomitant]
     Active Substance: CALCIUM CARBONATE
  7. LASIX [Concomitant]
     Active Substance: FUROSEMIDE
  8. PANTORC [Concomitant]
     Active Substance: PANTOPRAZOLE SODIUM
  9. LUVION [Concomitant]
  10. CARDICOR [Concomitant]
     Active Substance: BISOPROLOL
  11. VALCYTE [Concomitant]
     Active Substance: VALGANCICLOVIR HYDROCHLORIDE
  12. TRIATEC [Concomitant]

REACTIONS (5)
  - Dyspnoea [Fatal]
  - Pyrexia [Fatal]
  - Aspergillus infection [Fatal]
  - Sputum discoloured [Fatal]
  - Cytomegalovirus infection [Fatal]

NARRATIVE: CASE EVENT DATE: 20210201
